FAERS Safety Report 16453432 (Version 1)
Quarter: 2019Q2

REPORT INFORMATION
  Report Type: Spontaneous
  Country: US (occurrence: US)
  Receive Date: 20190619
  Receipt Date: 20190619
  Transmission Date: 20190711
  Serious: No
  Sender: FDA-Public Use
  Company Number: US-ROCHE-2263026

PATIENT

DRUGS (7)
  1. HUMIRA [Concomitant]
     Active Substance: ADALIMUMAB
  2. REMICADE [Concomitant]
     Active Substance: INFLIXIMAB
  3. METHOTREXATE. [Concomitant]
     Active Substance: METHOTREXATE
  4. ACTEMRA [Suspect]
     Active Substance: TOCILIZUMAB
     Indication: PSORIATIC ARTHROPATHY
     Route: 065
  5. CIMZIA [Concomitant]
     Active Substance: CERTOLIZUMAB PEGOL
  6. PLAQUENIL [Concomitant]
     Active Substance: HYDROXYCHLOROQUINE SULFATE
  7. ENBREL [Concomitant]
     Active Substance: ETANERCEPT

REACTIONS (2)
  - Drug ineffective [Unknown]
  - No adverse event [Unknown]
